FAERS Safety Report 12177437 (Version 1)
Quarter: 2016Q1

REPORT INFORMATION
  Report Type: Report from Study
  Country: TR (occurrence: TR)
  Receive Date: 20160315
  Receipt Date: 20160315
  Transmission Date: 20160526
  Serious: Yes (Hospitalization)
  Sender: FDA-Public Use
  Company Number: TR-ROCHE-1714324

PATIENT
  Age: 68 Year
  Sex: Male
  Weight: 63.8 kg

DRUGS (6)
  1. ZYCAL [Concomitant]
     Indication: PRURITUS
     Route: 048
     Dates: start: 20151217
  2. ATEZOLIZUMAB [Suspect]
     Active Substance: ATEZOLIZUMAB
     Indication: RENAL CELL CARCINOMA
     Dosage: MOST RECENT DOSE PRIOR TO THE EVENT: 28/JAN/2016
     Route: 042
     Dates: start: 20151126
  3. BEVACIZUMAB [Suspect]
     Active Substance: BEVACIZUMAB
     Indication: RENAL CELL CARCINOMA
     Dosage: MOST RECENT DOSE PRIOR TO THE EVENT: 28/JAN/2016
     Route: 042
     Dates: start: 20151126
  4. FUROSEMIDE. [Concomitant]
     Active Substance: FUROSEMIDE
     Indication: OEDEMA PERIPHERAL
     Route: 048
     Dates: start: 20160219, end: 20160223
  5. POTASSIUM POLYSTYRENE SULPHONATE [Concomitant]
     Indication: HYPERKALAEMIA
     Route: 048
     Dates: start: 20160107
  6. NORVASC [Concomitant]
     Active Substance: AMLODIPINE BESYLATE
     Indication: HYPERTENSION
     Route: 048
     Dates: start: 20160107

REACTIONS (1)
  - Acute kidney injury [Not Recovered/Not Resolved]

NARRATIVE: CASE EVENT DATE: 20160218
